FAERS Safety Report 21636657 (Version 1)
Quarter: 2022Q4

REPORT INFORMATION
  Report Type: Report from Study
  Country: FR (occurrence: FR)
  Receive Date: 20221124
  Receipt Date: 20221124
  Transmission Date: 20230113
  Serious: Yes (Hospitalization)
  Sender: FDA-Public Use
  Company Number: FR-ABBVIE-4211395

PATIENT
  Age: 12 Year
  Sex: Male

DRUGS (2)
  1. HUMIRA [Suspect]
     Active Substance: ADALIMUMAB
     Indication: Crohn^s disease
     Route: 058
     Dates: start: 20221004, end: 20221004
  2. HUMIRA [Suspect]
     Active Substance: ADALIMUMAB
     Dosage: 2022, WEEK 2
     Route: 058

REACTIONS (6)
  - Crohn^s disease [Unknown]
  - Injection site pain [Unknown]
  - Nausea [Unknown]
  - Headache [Unknown]
  - Gastrointestinal disorder [Unknown]
  - Injection site coldness [Unknown]

NARRATIVE: CASE EVENT DATE: 20220101
